FAERS Safety Report 8265719-3 (Version None)
Quarter: 2012Q2

REPORT INFORMATION
  Report Type: 
  Country: None (occurrence: None)
  Receive Date: 20120403
  Receipt Date: 20120320
  Transmission Date: 20120825
  Serious: Yes (Hospitalization, Disabling, Other)
  Sender: FDA-Public Use
  Company Number: IMP_05788_2012

PATIENT
  Age: 36 Year
  Sex: Male

DRUGS (3)
  1. TESTOSTERONE [Concomitant]
  2. CABERGOLINE [Suspect]
     Indication: PROLACTINOMA
     Dosage: 1 MG 1X/WEEK, (GRADUALLY INCREASED OVER THREE MONTHS), (3 MG 1XWEEK), 2 MG 1X/WEEK)
  3. LEVOTHYROXINE SODIUM [Concomitant]

REACTIONS (5)
  - THYROXINE DECREASED [None]
  - CONVULSION [None]
  - BLINDNESS [None]
  - HEMIANOPIA [None]
  - BRAIN HERNIATION [None]
